FAERS Safety Report 10266079 (Version 3)
Quarter: 2018Q4

REPORT INFORMATION
  Report Type: Spontaneous
  Country: US (occurrence: US)
  Receive Date: 20140627
  Receipt Date: 20181011
  Transmission Date: 20190204
  Serious: Yes (Hospitalization, Disabling, Other)
  Sender: FDA-Public Use
  Company Number: US-SA-2014SA082486

PATIENT
  Age: 46 Year
  Sex: Female

DRUGS (1)
  1. AUBAGIO [Suspect]
     Active Substance: TERIFLUNOMIDE
     Indication: MULTIPLE SCLEROSIS
     Dosage: 14 MG,QD
     Route: 048
     Dates: start: 20140605

REACTIONS (11)
  - Fall [Not Recovered/Not Resolved]
  - Fall [Unknown]
  - Decreased interest [Unknown]
  - Hordeolum [Unknown]
  - Diarrhoea [Unknown]
  - Weight decreased [Unknown]
  - Depression [Unknown]
  - Colitis microscopic [Unknown]
  - Haematochezia [Unknown]
  - Seizure [Unknown]
  - Tongue injury [Unknown]

NARRATIVE: CASE EVENT DATE: 2017
